FAERS Safety Report 22664970 (Version 1)
Quarter: 2023Q2

REPORT INFORMATION
  Report Type: Spontaneous
  Country: US (occurrence: None)
  Receive Date: 20230630
  Receipt Date: 20230630
  Transmission Date: 20230721
  Serious: Yes (Disabling)
  Sender: FDA-Public Use
  Company Number: None

PATIENT
  Age: 40 Year
  Sex: Female
  Weight: 54 kg

DRUGS (1)
  1. CIPROFLOXACIN [Suspect]
     Active Substance: CIPROFLOXACIN
     Indication: Urinary tract infection
     Dosage: FREQUENCY : TWICE A DAY;?
     Route: 048
     Dates: start: 20220215, end: 20220219

REACTIONS (8)
  - Gait disturbance [None]
  - Arthralgia [None]
  - Impaired work ability [None]
  - Weight bearing difficulty [None]
  - Injury [None]
  - Quality of life decreased [None]
  - Economic problem [None]
  - Pain [None]

NARRATIVE: CASE EVENT DATE: 20220215
